FAERS Safety Report 4315566-X (Version None)
Quarter: 2004Q1

REPORT INFORMATION
  Report Type: 
  Country: None (occurrence: None)
  Receive Date: 20040311
  Receipt Date: 20040305
  Transmission Date: 20041129
  Serious: Yes (Other)
  Sender: FDA-Public Use
  Company Number: JP-ROCHE-360594

PATIENT
  Age: 81 Year
  Sex: Female

DRUGS (4)
  1. NICARDIPINE HCL [Suspect]
     Indication: DRUG USE FOR UNKNOWN INDICATION
     Route: 041
     Dates: start: 20040215
  2. NICHOLIN [Concomitant]
     Route: 042
     Dates: start: 20040215
  3. GLYCERIN [Concomitant]
     Route: 042
     Dates: start: 20040215
  4. LIPITOR [Concomitant]
     Dosage: DISCONTINUED AT THE TIME OF HOSPITALISATION.
     Route: 048
     Dates: end: 20040215

REACTIONS (1)
  - RHABDOMYOLYSIS [None]
